FAERS Safety Report 8436138-1 (Version None)
Quarter: 2012Q2

REPORT INFORMATION
  Report Type: 
  Country: None (occurrence: None)
  Receive Date: 20120614
  Receipt Date: 20120607
  Transmission Date: 20120825
  Serious: Yes (Hospitalization)
  Sender: FDA-Public Use
  Company Number: ES-ROCHE-1077303

PATIENT
  Sex: Male

DRUGS (10)
  1. CARVEDILOL [Concomitant]
  2. NORVASC [Concomitant]
  3. SPIRIVA [Concomitant]
  4. EVEROLIMUS [Suspect]
     Indication: METASTATIC RENAL CELL CARCINOMA
     Dosage: LAST DOSE PRIOR TO SAE WAS ON 25/NOV/2009
     Route: 048
     Dates: start: 20090610
  5. OMEPRAZOLE [Concomitant]
  6. AVASTIN [Suspect]
     Indication: METASTATIC RENAL CELL CARCINOMA
     Dosage: LAST DOSE PRIOR TO SAE WAS ON 20/NOV/2009
     Route: 042
     Dates: start: 20090610
  7. ENALAPRIL MALEATE [Concomitant]
  8. FUROSEMIDE [Concomitant]
  9. SYMBICORT [Concomitant]
     Dosage: TURBUHALER
  10. PREDNISONE TAB [Concomitant]

REACTIONS (2)
  - PNEUMONITIS [None]
  - NECROTISING FASCIITIS [None]
